FAERS Safety Report 9120550 (Version 3)
Quarter: 2013Q3

REPORT INFORMATION
  Report Type: Spontaneous
  Country: US (occurrence: US)
  Receive Date: 20130226
  Receipt Date: 20130703
  Transmission Date: 20140515
  Serious: Yes (Hospitalization, Other)
  Sender: FDA-Public Use
  Company Number: US-ROCHE-791153

PATIENT
  Sex: Male

DRUGS (2)
  1. ACCUTANE [Suspect]
     Indication: PRODUCT USED FOR UNKNOWN INDICATION
     Route: 048
     Dates: start: 1982, end: 1983
  2. ACCUTANE [Suspect]
     Route: 048
     Dates: start: 2006, end: 2007

REACTIONS (7)
  - Colitis ulcerative [Unknown]
  - Inflammatory bowel disease [Unknown]
  - Small intestinal obstruction [Unknown]
  - Seborrhoea [Unknown]
  - Dry skin [Unknown]
  - Lip dry [Unknown]
  - Blood cholesterol increased [Unknown]
